FAERS Safety Report 9458732 (Version 2)
Quarter: 2013Q3

REPORT INFORMATION
  Report Type: Spontaneous
  Country: US (occurrence: US)
  Receive Date: 20130814
  Receipt Date: 20130917
  Transmission Date: 20140515
  Serious: Yes (Disabling, Other)
  Sender: FDA-Public Use
  Company Number: US-CELGENEUS-163-21880-13080840

PATIENT
  Sex: Male
  Weight: 88.53 kg

DRUGS (2)
  1. REVLIMID [Suspect]
     Indication: MYELOFIBROSIS
     Dosage: 5 MILLIGRAM
     Route: 048
     Dates: start: 20130328
  2. TRANSFUSION [Concomitant]
     Indication: RED BLOOD CELL COUNT DECREASED
     Route: 065

REACTIONS (3)
  - Red blood cell count decreased [Recovering/Resolving]
  - Atrial fibrillation [Recovering/Resolving]
  - Oedema [Recovering/Resolving]
